FAERS Safety Report 4737374-8 (Version None)
Quarter: 2005Q3

REPORT INFORMATION
  Report Type: 
  Country: None (occurrence: None)
  Receive Date: 20050805
  Receipt Date: 20050727
  Transmission Date: 20060218
  Serious: Yes (Other)
  Sender: FDA-Public Use
  Company Number: 2005107793

PATIENT
  Age: 52 Year
  Sex: Female
  Weight: 90.7194 kg

DRUGS (8)
  1. DILANTIN KAPSEAL [Suspect]
     Indication: CONVULSION
     Dosage: 400 MG (2 IN 1 D), ORAL
     Route: 048
     Dates: start: 20050101
  2. POTASSIUM CHLORIDE [Concomitant]
  3. INDERAL [Concomitant]
  4. ZOLOFT [Concomitant]
  5. FUROSEMIDE [Concomitant]
  6. PREVACID [Concomitant]
  7. ULTRAM [Concomitant]
  8. AMITRIPTYLINE HCL [Concomitant]

REACTIONS (3)
  - ANTICONVULSANT DRUG LEVEL DECREASED [None]
  - CONVULSION [None]
  - HYPERTRICHOSIS [None]
